FAERS Safety Report 7040191-X (Version None)
Quarter: 2010Q4

REPORT INFORMATION
  Report Type: 
  Country: None (occurrence: None)
  Receive Date: 20101012
  Receipt Date: 20100930
  Transmission Date: 20110411
  Serious: Yes (Hospitalization, Other)
  Sender: FDA-Public Use
  Company Number: CA-ELI_LILLY_AND_COMPANY-CA201008003514

PATIENT
  Age: 73 Year
  Sex: Female

DRUGS (10)
  1. FORTEO [Suspect]
     Indication: OSTEOPOROSIS
     Dosage: 20 UG, DAILY (1/D)
     Route: 058
     Dates: start: 20091102
  2. ASAPHEN [Concomitant]
  3. BISOPROLOL [Concomitant]
  4. RATIO-DOMPERIDONE [Concomitant]
  5. PANTOPRAZOLE [Concomitant]
  6. OXYBUTYNIN [Concomitant]
  7. CARBOCAL D [Concomitant]
     Dosage: 400 IU, 2/D
  8. APO-LORAZEPAM [Concomitant]
  9. TYLENOL (CAPLET) [Concomitant]
     Dosage: 325 MG, 8 TABLETS A DAY
  10. SIMVASTATIN [Concomitant]

REACTIONS (3)
  - HYPOPERFUSION [None]
  - MALAISE [None]
  - PULMONARY EMBOLISM [None]
